FAERS Safety Report 5380114-2 (Version None)
Quarter: 2007Q3

REPORT INFORMATION
  Report Type: 
  Country: None (occurrence: None)
  Receive Date: 20070706
  Receipt Date: 20070425
  Transmission Date: 20080115
  Serious: No
  Sender: FDA-Public Use
  Company Number: A0648720A

PATIENT
  Age: 65 Year
  Sex: Female

DRUGS (11)
  1. TYKERB [Suspect]
     Indication: BREAST CANCER
     Dosage: 1250MG PER DAY
     Route: 048
     Dates: start: 20070420
  2. HYDREA [Concomitant]
  3. ATENOLOL [Concomitant]
  4. PROTONIX [Concomitant]
  5. ALLEGRA [Concomitant]
  6. LEXAPRO [Concomitant]
  7. ZOMETA [Concomitant]
  8. VITAMIN B6 [Concomitant]
  9. CALCIUM CHLORIDE [Concomitant]
  10. MULTI-VITAMIN [Concomitant]
  11. GLUCOSAMINE/CHONDROITIN [Concomitant]

REACTIONS (1)
  - DIARRHOEA [None]
